FAERS Safety Report 15942179 (Version 1)
Quarter: 2019Q1

REPORT INFORMATION
  Report Type: Spontaneous
  Country: US (occurrence: US)
  Receive Date: 20190211
  Receipt Date: 20190211
  Transmission Date: 20190417
  Serious: Yes (Hospitalization)
  Sender: FDA-Public Use
  Company Number: None

PATIENT
  Age: 67 Year
  Sex: Female
  Weight: 105.3 kg

DRUGS (2)
  1. DEFINITY [Suspect]
     Active Substance: PERFLUTREN
     Indication: ECHOCARDIOGRAM
     Dosage: ?          OTHER FREQUENCY:AS NEEDED FOR ECHO;?
     Route: 040
     Dates: start: 20190204, end: 20190204
  2. DEFINITY [Concomitant]
     Active Substance: PERFLUTREN
     Dates: start: 20190204, end: 20190204

REACTIONS (7)
  - Flushing [None]
  - Agitation [None]
  - Ear pain [None]
  - Headache [None]
  - Urticaria [None]
  - Anaphylactic reaction [None]
  - Abdominal discomfort [None]

NARRATIVE: CASE EVENT DATE: 20190204
